FAERS Safety Report 7054778 (Version 4)
Quarter: 2014Q3

REPORT INFORMATION
  Report Type: Spontaneous
  Country: US (occurrence: US)
  Receive Date: 20090720
  Receipt Date: 20140703
  Transmission Date: 20150326
  Serious: Yes (Life-Threatening, Other)
  Sender: FDA-Public Use
  Company Number: PHEH2009US07334

PATIENT
  Sex: Female

DRUGS (3)
  1. RECLAST [Suspect]
     Active Substance: ZOLEDRONIC ACID
     Dosage: UNK, (ONCE)
     Route: 042
     Dates: start: 201005
  2. RECLAST [Suspect]
     Active Substance: ZOLEDRONIC ACID
     Indication: OSTEOPOROSIS
     Dosage: UNK UKN, UNK
     Route: 042
  3. VITAMIN D [Concomitant]
     Active Substance: CHOLECALCIFEROL
     Dosage: UNK UKN, UNK

REACTIONS (33)
  - Dysstasia [Unknown]
  - Fatigue [Unknown]
  - Joint lock [Unknown]
  - Feeling hot [Unknown]
  - Heart rate increased [Unknown]
  - Hyperhidrosis [Unknown]
  - Cardiac arrest [Unknown]
  - Gait disturbance [Unknown]
  - Dry skin [Unknown]
  - Retching [Unknown]
  - Trismus [Unknown]
  - Nausea [Unknown]
  - Feeling abnormal [Unknown]
  - Weight increased [Unknown]
  - Palpitations [Unknown]
  - Abdominal discomfort [Unknown]
  - Eye pain [Unknown]
  - Vomiting [Unknown]
  - Arthralgia [Unknown]
  - Dry eye [Unknown]
  - Exercise tolerance decreased [Unknown]
  - Ocular hyperaemia [Unknown]
  - Pain [Unknown]
  - Bone pain [Unknown]
  - Myocardial infarction [Unknown]
  - Movement disorder [Unknown]
  - Connective tissue disorder [Unknown]
  - Cold sweat [Unknown]
  - Cyst [Unknown]
  - Headache [Unknown]
  - Ventricular extrasystoles [Unknown]
  - Abdominal distension [Unknown]
  - Hair texture abnormal [Unknown]
